FAERS Safety Report 9924739 (Version 1)
Quarter: 2014Q1

REPORT INFORMATION
  Report Type: Spontaneous
  Country: US (occurrence: None)
  Receive Date: 20140224
  Receipt Date: 20140224
  Transmission Date: 20141002
  Serious: Yes (Hospitalization, Other)
  Sender: FDA-Public Use
  Company Number: None

PATIENT
  Age: 40 Year
  Sex: Female
  Weight: 64.41 kg

DRUGS (1)
  1. HUMIRA [Suspect]
     Indication: RHEUMATOID ARTHRITIS
     Dosage: EVERY 2 WEEKS
     Route: 058

REACTIONS (14)
  - Rash [None]
  - Livedo reticularis [None]
  - Pain in extremity [None]
  - Fatigue [None]
  - Malaise [None]
  - Dyspnoea exertional [None]
  - Chest discomfort [None]
  - Feeling abnormal [None]
  - Headache [None]
  - Dizziness [None]
  - Balance disorder [None]
  - Gait disturbance [None]
  - Hypersensitivity [None]
  - Serum sickness [None]
